FAERS Safety Report 26180873 (Version 2)
Quarter: 2025Q4

REPORT INFORMATION
  Report Type: Spontaneous
  Country: US (occurrence: None)
  Receive Date: 20251221
  Receipt Date: 20251221
  Transmission Date: 20260118
  Serious: Yes (Disabling, Other)
  Sender: INFORLIFE
  Company Number: US-INFO-20250331

PATIENT
  Age: 69 Year
  Sex: Male

DRUGS (7)
  1. ZOLEDRONIC ACID [Suspect]
     Active Substance: ZOLEDRONIC ACID
     Indication: Metastases to bone
     Dosage: IN TOTAL
     Route: 040
  2. ABIRATERONE [Concomitant]
     Active Substance: ABIRATERONE
     Indication: Prostate cancer metastatic
  3. ELIQUIS [Concomitant]
     Active Substance: APIXABAN
     Indication: Deep vein thrombosis
  4. ASPIRIN [Concomitant]
     Active Substance: ASPIRIN
  5. ATORVASTATIN [Concomitant]
     Active Substance: ATORVASTATIN
     Dosage: AT BEDTIME
  6. DOCUSATE SODIUM [Concomitant]
     Active Substance: DOCUSATE SODIUM
  7. PREDNISONE [Concomitant]
     Active Substance: PREDNISONE

REACTIONS (2)
  - Spinal cord infarction [Recovering/Resolving]
  - Off label use [Unknown]
